FAERS Safety Report 18753707 (Version 2)
Quarter: 2021Q1

REPORT INFORMATION
  Report Type: Spontaneous
  Country: RU (occurrence: RU)
  Receive Date: 20210118
  Receipt Date: 20210126
  Transmission Date: 20210419
  Serious: Yes (Other)
  Sender: FDA-Public Use
  Company Number: RU-CELLTRION INC.-2021RU000185

PATIENT

DRUGS (2)
  1. FLAMMEGIS [Suspect]
     Active Substance: INFLIXIMAB
     Indication: ANKYLOSING SPONDYLITIS
     Dosage: 500 MG, ONCE EVERY 8 WEEKS
     Route: 042
     Dates: start: 201701, end: 201707
  2. INFLIXIMAB [Concomitant]
     Active Substance: INFLIXIMAB
     Indication: ANKYLOSING SPONDYLITIS
     Dosage: 500 MG, ONCE EVERY 8 WEEKS, LOWERED TO 300 MG
     Route: 042
     Dates: start: 200602, end: 201701

REACTIONS (4)
  - Condition aggravated [Unknown]
  - Ankylosing spondylitis [Unknown]
  - Off label use [Unknown]
  - Drug ineffective [Unknown]
